FAERS Safety Report 6819563-1 (Version None)
Quarter: 2010Q3

REPORT INFORMATION
  Report Type: 
  Country: None (occurrence: None)
  Receive Date: 20100701
  Receipt Date: 20090505
  Transmission Date: 20110219
  Serious: No
  Sender: FDA-Public Use
  Company Number: US-TEVA-187474USA

PATIENT
  Sex: Male

DRUGS (1)
  1. AZILECT [Suspect]
     Route: 048
     Dates: start: 20090101

REACTIONS (2)
  - MUSCULAR WEAKNESS [None]
  - OSTEOARTHRITIS [None]
